FAERS Safety Report 13761333 (Version 3)
Quarter: 2017Q3

REPORT INFORMATION
  Report Type: Spontaneous
  Country: US (occurrence: US)
  Receive Date: 20170717
  Receipt Date: 20170801
  Transmission Date: 20171127
  Serious: No
  Sender: FDA-Public Use
  Company Number: US-PFIZER INC-2017304932

PATIENT
  Age: 75 Year
  Sex: Male
  Weight: 82.54 kg

DRUGS (8)
  1. NICOTROL [Suspect]
     Active Substance: NICOTINE
     Dosage: INHALER, 5-6 TIMES A DAY
     Dates: start: 2006
  2. TELMISARTAN. [Concomitant]
     Active Substance: TELMISARTAN
     Indication: BLOOD PRESSURE ABNORMAL
     Dosage: 20 MG, 2X/DAY, MORNING AND NIGHT (ONE IN MORNING AND ONE AT NIGHT)
     Route: 048
  3. VIAGRA [Concomitant]
     Active Substance: SILDENAFIL CITRATE
     Indication: ERECTILE DYSFUNCTION
     Dosage: 100 MG, WEEKLY
     Route: 048
  4. VIAGRA [Concomitant]
     Active Substance: SILDENAFIL CITRATE
     Dosage: 100 MG, AS NEEDED
     Route: 048
  5. NICOTROL [Suspect]
     Active Substance: NICOTINE
     Indication: SMOKING CESSATION THERAPY
     Dosage: INHALER, 5-6 TIMES A DAY
     Dates: start: 2006
  6. STENDRA [Concomitant]
     Active Substance: AVANAFIL
     Dosage: 200 MG, UNK
  7. NICOTROL [Suspect]
     Active Substance: NICOTINE
     Dosage: INHALER, 5-6 TIMES A DAY
     Dates: start: 2006
  8. VIAGRA [Concomitant]
     Active Substance: SILDENAFIL CITRATE
     Dosage: 100 MG, AS NEEDED
     Route: 048

REACTIONS (2)
  - Drug ineffective [Unknown]
  - Dysgeusia [Not Recovered/Not Resolved]

NARRATIVE: CASE EVENT DATE: 2017
